FAERS Safety Report 26141566 (Version 1)
Quarter: 2025Q4

REPORT INFORMATION
  Report Type: Spontaneous
  Country: EU (occurrence: EU)
  Receive Date: 20251210
  Receipt Date: 20251210
  Transmission Date: 20260118
  Serious: Yes (Hospitalization)
  Sender: MYLAN
  Company Number: None

PATIENT
  Age: 73 Year
  Sex: Male
  Weight: 56 kg

DRUGS (40)
  1. OXALIPLATIN [Suspect]
     Active Substance: OXALIPLATIN
     Indication: Adenocarcinoma gastric
     Dosage: UNK (NOT SPECIFIED)
     Dates: start: 20250415, end: 20250415
  2. OXALIPLATIN [Suspect]
     Active Substance: OXALIPLATIN
     Dosage: UNK (NOT SPECIFIED)
     Route: 042
     Dates: start: 20250415, end: 20250415
  3. OXALIPLATIN [Suspect]
     Active Substance: OXALIPLATIN
     Dosage: UNK (NOT SPECIFIED)
     Route: 042
     Dates: start: 20250415, end: 20250415
  4. OXALIPLATIN [Suspect]
     Active Substance: OXALIPLATIN
     Dosage: UNK (NOT SPECIFIED)
     Dates: start: 20250415, end: 20250415
  5. FLUOROURACIL [Suspect]
     Active Substance: FLUOROURACIL
     Indication: Adenocarcinoma gastric
     Dosage: UNK (NOT SPECIFIED)
     Dates: start: 20250415, end: 20250415
  6. FLUOROURACIL [Suspect]
     Active Substance: FLUOROURACIL
     Dosage: UNK (NOT SPECIFIED)
     Route: 042
     Dates: start: 20250415, end: 20250415
  7. FLUOROURACIL [Suspect]
     Active Substance: FLUOROURACIL
     Dosage: UNK (NOT SPECIFIED)
     Route: 042
     Dates: start: 20250415, end: 20250415
  8. FLUOROURACIL [Suspect]
     Active Substance: FLUOROURACIL
     Dosage: UNK (NOT SPECIFIED)
     Dates: start: 20250415, end: 20250415
  9. DOCETAXEL [Suspect]
     Active Substance: DOCETAXEL
     Indication: Adenocarcinoma gastric
     Dosage: UNK (NOT SPECIFIED)
     Dates: start: 20250415, end: 20250415
  10. DOCETAXEL [Suspect]
     Active Substance: DOCETAXEL
     Dosage: UNK (NOT SPECIFIED)
     Route: 042
     Dates: start: 20250415, end: 20250415
  11. DOCETAXEL [Suspect]
     Active Substance: DOCETAXEL
     Dosage: UNK (NOT SPECIFIED)
     Route: 042
     Dates: start: 20250415, end: 20250415
  12. DOCETAXEL [Suspect]
     Active Substance: DOCETAXEL
     Dosage: UNK (NOT SPECIFIED)
     Dates: start: 20250415, end: 20250415
  13. NEBIVOLOL [Concomitant]
     Active Substance: NEBIVOLOL
     Dosage: UNK
  14. NEBIVOLOL [Concomitant]
     Active Substance: NEBIVOLOL
     Dosage: UNK
     Route: 065
  15. NEBIVOLOL [Concomitant]
     Active Substance: NEBIVOLOL
     Dosage: UNK
     Route: 065
  16. NEBIVOLOL [Concomitant]
     Active Substance: NEBIVOLOL
     Dosage: UNK
  17. LEVOTHYROXINE SODIUM [Concomitant]
     Active Substance: LEVOTHYROXINE SODIUM
     Dosage: UNK
  18. LEVOTHYROXINE SODIUM [Concomitant]
     Active Substance: LEVOTHYROXINE SODIUM
     Dosage: UNK
     Route: 065
  19. LEVOTHYROXINE SODIUM [Concomitant]
     Active Substance: LEVOTHYROXINE SODIUM
     Dosage: UNK
     Route: 065
  20. LEVOTHYROXINE SODIUM [Concomitant]
     Active Substance: LEVOTHYROXINE SODIUM
     Dosage: UNK
  21. METFORMIN HYDROCHLORIDE [Concomitant]
     Active Substance: METFORMIN HYDROCHLORIDE
     Dosage: UNK
  22. METFORMIN HYDROCHLORIDE [Concomitant]
     Active Substance: METFORMIN HYDROCHLORIDE
     Dosage: UNK
     Route: 065
  23. METFORMIN HYDROCHLORIDE [Concomitant]
     Active Substance: METFORMIN HYDROCHLORIDE
     Dosage: UNK
     Route: 065
  24. METFORMIN HYDROCHLORIDE [Concomitant]
     Active Substance: METFORMIN HYDROCHLORIDE
     Dosage: UNK
  25. REPAGLINIDE [Concomitant]
     Active Substance: REPAGLINIDE
     Dosage: UNK
  26. REPAGLINIDE [Concomitant]
     Active Substance: REPAGLINIDE
     Dosage: UNK
     Route: 065
  27. REPAGLINIDE [Concomitant]
     Active Substance: REPAGLINIDE
     Dosage: UNK
     Route: 065
  28. REPAGLINIDE [Concomitant]
     Active Substance: REPAGLINIDE
     Dosage: UNK
  29. ATORVASTATIN [Concomitant]
     Active Substance: ATORVASTATIN
     Dosage: UNK
  30. ATORVASTATIN [Concomitant]
     Active Substance: ATORVASTATIN
     Dosage: UNK
     Route: 065
  31. ATORVASTATIN [Concomitant]
     Active Substance: ATORVASTATIN
     Dosage: UNK
     Route: 065
  32. ATORVASTATIN [Concomitant]
     Active Substance: ATORVASTATIN
     Dosage: UNK
  33. ELIQUIS [Concomitant]
     Active Substance: APIXABAN
     Dosage: UNK
  34. ELIQUIS [Concomitant]
     Active Substance: APIXABAN
     Dosage: UNK
     Route: 065
  35. ELIQUIS [Concomitant]
     Active Substance: APIXABAN
     Dosage: UNK
     Route: 065
  36. ELIQUIS [Concomitant]
     Active Substance: APIXABAN
     Dosage: UNK
  37. KARDEGIC [Concomitant]
     Active Substance: ASPIRIN DL-LYSINE
     Dosage: UNK
  38. KARDEGIC [Concomitant]
     Active Substance: ASPIRIN DL-LYSINE
     Dosage: UNK
     Route: 065
  39. KARDEGIC [Concomitant]
     Active Substance: ASPIRIN DL-LYSINE
     Dosage: UNK
     Route: 065
  40. KARDEGIC [Concomitant]
     Active Substance: ASPIRIN DL-LYSINE
     Dosage: UNK

REACTIONS (3)
  - Laryngeal oedema [Recovered/Resolved with Sequelae]
  - Capillary leak syndrome [Recovered/Resolved]
  - Laryngitis [Recovering/Resolving]

NARRATIVE: CASE EVENT DATE: 20250501
